FAERS Safety Report 11174980 (Version 1)
Quarter: 2015Q2

REPORT INFORMATION
  Report Type: Spontaneous
  Country: US (occurrence: None)
  Receive Date: 20150608
  Receipt Date: 20150608
  Transmission Date: 20150821
  Serious: Yes (Other)
  Sender: FDA-Public Use
  Company Number: None

PATIENT
  Age: 36 Year
  Sex: Female

DRUGS (1)
  1. ANADIN EXTRA [Suspect]
     Active Substance: ACETAMINOPHEN\ASPIRIN\CAFFEINE
     Indication: HEADACHE
     Dosage: 2 PILLS ONCE AT 6PM
     Route: 048
     Dates: start: 20150601, end: 20150601

REACTIONS (7)
  - Chest pain [None]
  - Dyspnoea [None]
  - Malaise [None]
  - Feeling hot [None]
  - Abdominal pain upper [None]
  - Fatigue [None]
  - Swelling face [None]

NARRATIVE: CASE EVENT DATE: 20150601
